FAERS Safety Report 7665489-3 (Version None)
Quarter: 2011Q3

REPORT INFORMATION
  Report Type: 
  Country: None (occurrence: None)
  Receive Date: 20110806
  Receipt Date: 20110502
  Transmission Date: 20111222
  Serious: No
  Sender: FDA-Public Use
  Company Number: US-ABBOTT-11P-163-0723252-00

PATIENT
  Sex: Female
  Weight: 61.744 kg

DRUGS (3)
  1. VIT B12 [Concomitant]
     Indication: VITAMIN SUPPLEMENTATION
  2. CALCIUM/VITAMIN D [Concomitant]
     Indication: MINERAL SUPPLEMENTATION
  3. NIASPAN [Suspect]
     Indication: BLOOD CHOLESTEROL INCREASED
     Dates: start: 20110201, end: 20110201

REACTIONS (1)
  - PARAESTHESIA [None]
